FAERS Safety Report 15570363 (Version 4)
Quarter: 2018Q4

REPORT INFORMATION
  Report Type: Spontaneous
  Country: US (occurrence: US)
  Receive Date: 20181031
  Receipt Date: 20181231
  Transmission Date: 20190205
  Serious: No
  Sender: FDA-Public Use
  Company Number: US-ALKERMES INC.-ALK-2018-005913

PATIENT
  Age: 25 Year
  Sex: Female

DRUGS (1)
  1. ARISTADA [Suspect]
     Active Substance: ARIPIPRAZOLE LAUROXIL
     Indication: SCHIZOPHRENIA
     Dosage: 1064 MG, Q2MO
     Dates: start: 201807

REACTIONS (2)
  - Increased appetite [Not Recovered/Not Resolved]
  - Hallucination, auditory [Unknown]

NARRATIVE: CASE EVENT DATE: 2018
